FAERS Safety Report 24105927 (Version 2)
Quarter: 2024Q3

REPORT INFORMATION
  Report Type: Report from Study
  Country: IN (occurrence: IN)
  Receive Date: 20240717
  Receipt Date: 20240828
  Transmission Date: 20241017
  Serious: No
  Sender: PFIZER
  Company Number: IN-TAKEDA-2023TUS074251

PATIENT
  Age: 33 Year
  Sex: Male

DRUGS (3)
  1. ADCETRIS [Suspect]
     Active Substance: BRENTUXIMAB VEDOTIN
     Indication: Hodgkin^s disease recurrent
     Dosage: 100 MILLIGRAM
     Route: 042
     Dates: start: 20230721
  2. ADCETRIS [Suspect]
     Active Substance: BRENTUXIMAB VEDOTIN
     Dosage: 100 MILLIGRAM
     Route: 042
  3. ADCETRIS [Suspect]
     Active Substance: BRENTUXIMAB VEDOTIN
     Dosage: 100 MILLIGRAM
     Route: 042
     Dates: start: 20230721

REACTIONS (10)
  - White blood cell count decreased [Unknown]
  - Diarrhoea [Unknown]
  - Pain [Unknown]
  - Irritability [Unknown]
  - Anger [Unknown]
  - Social problem [Unknown]
  - Psychiatric symptom [Unknown]
  - White blood cell count abnormal [Unknown]
  - Weight decreased [Unknown]
  - Viral infection [Unknown]
